FAERS Safety Report 9928307 (Version 1)
Quarter: 2014Q1

REPORT INFORMATION
  Report Type: Spontaneous
  Country: US (occurrence: None)
  Receive Date: 20140224
  Receipt Date: 20140224
  Transmission Date: 20141002
  Serious: Yes (Other)
  Sender: FDA-Public Use
  Company Number: 2014-00032

PATIENT
  Age: 33 Year
  Sex: Female

DRUGS (1)
  1. ZICAM EXTREME CONGESTION RELIEF [Suspect]
     Indication: SEASONAL ALLERGY
     Dosage: 1 SPRAY / NOSTRIL EVERY 6 HOURS?
     Dates: start: 2012, end: 2014

REACTIONS (1)
  - Drug dependence [None]
